FAERS Safety Report 16952222 (Version 1)
Quarter: 2019Q4

REPORT INFORMATION
  Report Type: Spontaneous
  Country: SA (occurrence: SA)
  Receive Date: 20191023
  Receipt Date: 20191023
  Transmission Date: 20200122
  Serious: Yes (Other)
  Sender: FDA-Public Use
  Company Number: SA-GLAXOSMITHKLINE-SA2019EME189379

PATIENT

DRUGS (2)
  1. DUODART [Suspect]
     Active Substance: DUTASTERIDE\TAMSULOSIN
     Indication: BENIGN PROSTATIC HYPERPLASIA
     Dosage: 0.5 MG, QD
     Route: 048
     Dates: start: 20191001, end: 20191015
  2. DUODART [Suspect]
     Active Substance: DUTASTERIDE\TAMSULOSIN
     Dosage: 0.4 MG, QD
     Route: 048
     Dates: start: 20191001, end: 20191015

REACTIONS (3)
  - Dysuria [Recovering/Resolving]
  - Urinary tract obstruction [Recovering/Resolving]
  - Condition aggravated [Recovering/Resolving]

NARRATIVE: CASE EVENT DATE: 20191015
